FAERS Safety Report 4891816-6 (Version None)
Quarter: 2006Q1

REPORT INFORMATION
  Report Type: 
  Country: None (occurrence: None)
  Receive Date: 20060123
  Receipt Date: 20060112
  Transmission Date: 20060701
  Serious: Yes (Hospitalization)
  Sender: FDA-Public Use
  Company Number: FR200601001949

PATIENT
  Sex: Female

DRUGS (2)
  1. FORTEO [Suspect]
     Indication: OSTEOPOROSIS
     Dosage: 20 UG, DAILY (1/D); SUBCUTANEOUS
     Route: 058
  2. FORTEO PEN (25OMCG/ML) (FORTEO PEN 250MCG/ML (3ML) PEN, DISPOSABLE [Concomitant]

REACTIONS (1)
  - PERIPHERAL VASCULAR DISORDER [None]
